FAERS Safety Report 4913385-4 (Version None)
Quarter: 2006Q1

REPORT INFORMATION
  Report Type: 
  Country: None (occurrence: None)
  Receive Date: 20060210
  Receipt Date: 20060202
  Transmission Date: 20060701
  Serious: Yes (Other)
  Sender: FDA-Public Use
  Company Number: B0409008A

PATIENT
  Age: 2 Month
  Sex: Male

DRUGS (2)
  1. FLOVENT [Suspect]
     Dosage: 200 MCG, THREE TIMES PER DAY; TRANS
     Route: 064
     Dates: end: 20051104
  2. FLOVENT [Suspect]
     Dosage: 200 MCG, THREE TIMES PER DAY, TRANS
     Route: 064
     Dates: start: 20051105

REACTIONS (5)
  - ADRENAL INSUFFICIENCY NEONATAL [None]
  - DERMATITIS [None]
  - DRUG EXPOSURE DURING PREGNANCY [None]
  - DRUG EXPOSURE VIA BREAST MILK [None]
  - NEONATAL DISORDER [None]
